FAERS Safety Report 9720430 (Version 1)
Quarter: 2013Q4

REPORT INFORMATION
  Report Type: Spontaneous
  Country: US (occurrence: US)
  Receive Date: 20131129
  Receipt Date: 20131129
  Transmission Date: 20140711
  Serious: No
  Sender: FDA-Public Use
  Company Number: US-009507513-1311USA012099

PATIENT
  Sex: Female

DRUGS (1)
  1. NEXPLANON [Suspect]
     Route: 059

REACTIONS (3)
  - Wrong technique in drug usage process [Unknown]
  - Inappropriate schedule of drug administration [Unknown]
  - No adverse event [Unknown]
